FAERS Safety Report 10262217 (Version 1)
Quarter: 2014Q2

REPORT INFORMATION
  Report Type: Spontaneous
  Country: US (occurrence: US)
  Receive Date: 20140626
  Receipt Date: 20140626
  Transmission Date: 20141212
  Serious: Yes (Other)
  Sender: FDA-Public Use
  Company Number: US-JNJFOC-20140612658

PATIENT
  Age: 72 Year
  Sex: Female

DRUGS (8)
  1. XARELTO [Suspect]
     Indication: CEREBROVASCULAR ACCIDENT PROPHYLAXIS
     Route: 048
     Dates: start: 201403, end: 20140414
  2. XARELTO [Suspect]
     Indication: CEREBROVASCULAR ACCIDENT PROPHYLAXIS
     Dosage: ONE HALF TABLET
     Route: 048
     Dates: start: 20140517, end: 20140615
  3. XARELTO [Suspect]
     Indication: CEREBROVASCULAR ACCIDENT PROPHYLAXIS
     Route: 048
     Dates: start: 20140616
  4. XARELTO [Suspect]
     Indication: CEREBROVASCULAR ACCIDENT PROPHYLAXIS
     Route: 048
     Dates: start: 20140415, end: 20140516
  5. XARELTO [Suspect]
     Indication: ATRIAL FIBRILLATION
     Route: 048
     Dates: start: 20140415, end: 20140516
  6. XARELTO [Suspect]
     Indication: ATRIAL FIBRILLATION
     Route: 048
     Dates: start: 20140616
  7. XARELTO [Suspect]
     Indication: ATRIAL FIBRILLATION
     Dosage: ONE HALF TABLET
     Route: 048
     Dates: start: 20140517, end: 20140615
  8. XARELTO [Suspect]
     Indication: ATRIAL FIBRILLATION
     Route: 048
     Dates: start: 201403, end: 20140414

REACTIONS (5)
  - Transient ischaemic attack [Recovered/Resolved]
  - Drug prescribing error [Unknown]
  - Gastrointestinal disorder [Recovered/Resolved]
  - Wrong technique in drug usage process [Unknown]
  - Palpitations [Recovered/Resolved]
